FAERS Safety Report 10188022 (Version 1)
Quarter: 2014Q2

REPORT INFORMATION
  Report Type: Spontaneous
  Country: US (occurrence: US)
  Receive Date: 20140522
  Receipt Date: 20140522
  Transmission Date: 20141212
  Serious: No
  Sender: FDA-Public Use
  Company Number: US-SA-2013SA097481

PATIENT
  Age: 64 Year
  Sex: Female
  Weight: 59 kg

DRUGS (7)
  1. CAPZASIN HP ARTHRITIS PAIN RELIEF [Suspect]
     Indication: ARTHRITIS
     Route: 065
     Dates: start: 201309
  2. LANTUS [Suspect]
     Indication: DIABETES MELLITUS
     Route: 051
     Dates: start: 1967
  3. HUMALOG [Concomitant]
     Indication: DIABETES MELLITUS
     Route: 065
     Dates: start: 1967
  4. SYNTHROID [Concomitant]
     Indication: THYROID DISORDER
     Route: 065
     Dates: start: 1983
  5. QUINAPRIL [Concomitant]
     Route: 065
  6. ZOCOR [Concomitant]
     Route: 065
  7. FENTANYL [Concomitant]
     Route: 065

REACTIONS (2)
  - Burning sensation [Recovered/Resolved]
  - Condition aggravated [Unknown]
